FAERS Safety Report 5179758-2 (Version None)
Quarter: 2006Q4

REPORT INFORMATION
  Report Type: 
  Country: None (occurrence: None)
  Receive Date: 20061212
  Receipt Date: 20061129
  Transmission Date: 20070319
  Serious: Yes (Hospitalization, Other)
  Sender: FDA-Public Use
  Company Number: 2006130047

PATIENT
  Age: 52 Year
  Sex: Male
  Weight: 76 kg

DRUGS (3)
  1. NEURONTIN [Suspect]
     Indication: WHIPLASH INJURY
     Dosage: 1200 MG (600 MG, 2 IN 1 D), ORAL
     Route: 048
     Dates: start: 20030514, end: 20060922
  2. TAVONIN (GINKGO  BILOBA) [Suspect]
     Dosage: ORAL
     Route: 048
     Dates: start: 20040519, end: 20060922
  3. DEANXIT (FLUPENTIXOL, MELITRACEN) [Concomitant]

REACTIONS (10)
  - BALANCE DISORDER [None]
  - DIZZINESS [None]
  - HEADACHE [None]
  - MALAISE [None]
  - MULTIPLE SCLEROSIS [None]
  - NAUSEA [None]
  - NECK PAIN [None]
  - PARAESTHESIA [None]
  - VERTIGO [None]
  - VISUAL DISTURBANCE [None]
